FAERS Safety Report 7228101-3 (Version None)
Quarter: 2011Q1

REPORT INFORMATION
  Report Type: 
  Country: None (occurrence: None)
  Receive Date: 20110106
  Receipt Date: 20101022
  Transmission Date: 20110831
  Serious: Yes (Other)
  Sender: FDA-Public Use
  Company Number: ACO_21170_2010

PATIENT
  Sex: Female

DRUGS (10)
  1. SYNTHROID [Concomitant]
  2. NEXIUM [Concomitant]
  3. VITAMIN D [Concomitant]
  4. AMPYRA [Suspect]
     Indication: PRODUCT USED FOR UNKNOWN INDICATION
     Dosage: 10MG, Q 12 HRS, ORAL
     Route: 048
     Dates: start: 20101001, end: 20101001
  5. LISINOPRIL [Concomitant]
  6. CALCIUM WITH VITAMIN D (CALCIUM CARBONATE, COLECALCIFEROL) [Concomitant]
  7. ZOLOFT [Concomitant]
  8. TRIAMTERENE AND YDROCHLOROTHIAZID (HYDROCHLOROTHIAZIDE, TRIAMTERENE) [Concomitant]
  9. LIPITOR 9ATORVASTATIN CALCIUM) [Concomitant]
  10. MULTIVITAMIN [Concomitant]

REACTIONS (1)
  - RENAL FAILURE [None]
